FAERS Safety Report 7464175-2 (Version None)
Quarter: 2011Q2

REPORT INFORMATION
  Report Type: 
  Country: None (occurrence: None)
  Receive Date: 20110506
  Receipt Date: 20110502
  Transmission Date: 20111010
  Serious: Yes (Other)
  Sender: FDA-Public Use
  Company Number: US-MERCK-1012USA01903

PATIENT
  Sex: Female

DRUGS (13)
  1. VITAMINS (UNSPECIFIED) [Concomitant]
     Dosage: PRE-NATAL
     Route: 065
     Dates: start: 20080101
  2. FOLIC ACID [Concomitant]
     Dosage: 1
     Route: 065
     Dates: start: 20080101
  3. [THERAPY UNSPECIFIED] [Concomitant]
     Dosage: FOR TX OF RA
     Route: 065
  4. FOSAMAX [Suspect]
     Indication: OSTEOPOROSIS
     Route: 048
     Dates: start: 20010101, end: 20080101
  5. FOSAMAX [Suspect]
     Route: 048
     Dates: start: 20080601, end: 20080101
  6. VITAMINS (UNSPECIFIED) [Concomitant]
     Dosage: MULTIVITAMIN
     Route: 065
     Dates: start: 20050101
  7. PRILOSEC [Concomitant]
     Route: 048
  8. OMEPRAZOLE [Concomitant]
     Route: 065
  9. FOSAMAX [Suspect]
     Indication: OSTEOPOROTIC FRACTURE
     Route: 048
     Dates: start: 20010101, end: 20080101
  10. POTASSIUM (UNSPECIFIED) [Concomitant]
     Route: 065
     Dates: start: 20080101
  11. FOSAMAX [Suspect]
     Route: 048
     Dates: start: 20080601, end: 20080101
  12. OS-CAL [Concomitant]
     Route: 065
     Dates: start: 20050801
  13. CORTICOSTEROIDS (UNSPECIFIED) [Concomitant]
     Route: 065

REACTIONS (2)
  - FEMUR FRACTURE [None]
  - LOW TURNOVER OSTEOPATHY [None]
